FAERS Safety Report 7774656-X (Version None)
Quarter: 2011Q3

REPORT INFORMATION
  Report Type: 
  Country: None (occurrence: None)
  Receive Date: 20110923
  Receipt Date: 20110920
  Transmission Date: 20111222
  Serious: Yes (Hospitalization)
  Sender: FDA-Public Use
  Company Number: DE-PFIZER INC-2011222349

PATIENT
  Age: 22 Year
  Sex: Male
  Weight: 79 kg

DRUGS (6)
  1. ZITHROMAX [Suspect]
     Indication: URETHRITIS CHLAMYDIAL
     Dosage: 1000 MG, 1X/DAY
     Route: 048
     Dates: start: 20110318, end: 20110318
  2. SEROQUEL XR [Concomitant]
     Indication: WITHDRAWAL SYNDROME
     Dosage: 50 MG, 1X/DAY
     Route: 048
     Dates: start: 20110315
  3. PANTOPRAZOLE [Concomitant]
     Indication: WITHDRAWAL SYNDROME
     Dosage: 40 MG, UNK
     Route: 048
     Dates: start: 20110315, end: 20110320
  4. MAGNESIOCARD [Concomitant]
     Indication: WITHDRAWAL SYNDROME
     Dosage: UNK
     Route: 048
     Dates: start: 20110315
  5. ZITHROMAX [Suspect]
     Dosage: 500 MG, 1X/DAY
     Route: 048
     Dates: start: 20110319, end: 20110319
  6. L-POLAMIDON [Concomitant]
     Indication: DRUG DEPENDENCE
     Dosage: 6.0 ML, UNK
     Route: 048
     Dates: start: 20090101

REACTIONS (5)
  - BONE PAIN [None]
  - RASH [None]
  - NAUSEA [None]
  - TRANSAMINASES INCREASED [None]
  - PYREXIA [None]
